FAERS Safety Report 8811371 (Version 1)
Quarter: 2012Q4

REPORT INFORMATION
  Report Type: Spontaneous
  Country: None (occurrence: None)
  Receive Date: 20120924
  Receipt Date: 20120924
  Transmission Date: 20130627
  Serious: Yes (Other)
  Sender: FDA-Public Use
  Company Number: AUR-APL-2012-04007

PATIENT
  Age: 35 Year
  Sex: Male

DRUGS (6)
  1. CITALOPRAM (CITALOPRAM) [Suspect]
     Indication: DEPRESSION
     Route: 048
     Dates: start: 20120817, end: 20120903
  2. CLEXANE (ENOXAPARIN SODIUM) [Concomitant]
  3. FENTANYL [Concomitant]
  4. IBUPROFEN [Concomitant]
  5. LANSOPRAZOLE [Concomitant]
  6. PARACETAMOL [Concomitant]

REACTIONS (1)
  - Status epilepticus [None]
